FAERS Safety Report 4448229-0 (Version None)
Quarter: 2004Q3

REPORT INFORMATION
  Report Type: 
  Country: None (occurrence: None)
  Receive Date: 20040813
  Receipt Date: 20040625
  Transmission Date: 20050211
  Serious: Yes (Hospitalization)
  Sender: FDA-Public Use
  Company Number: SO4-USA-03708-01

PATIENT
  Age: 68 Year
  Sex: Male

DRUGS (17)
  1. NAMENDA [Suspect]
     Indication: DEMENTIA ALZHEIMER'S TYPE
     Dosage: 20 MG QD PO
     Route: 048
     Dates: start: 20040622, end: 20040624
  2. NAMENDA [Suspect]
     Indication: DEMENTIA ALZHEIMER'S TYPE
     Dosage: 5 MG QD PO
     Route: 048
     Dates: start: 20040601, end: 20040607
  3. NAMENDA [Suspect]
     Indication: DEMENTIA ALZHEIMER'S TYPE
     Dosage: 10 MG QD PO
     Route: 048
     Dates: start: 20040608, end: 20040614
  4. NAMENDA [Suspect]
     Indication: DEMENTIA ALZHEIMER'S TYPE
     Dosage: 15 MG QD PO
     Route: 048
     Dates: start: 20040615, end: 20040621
  5. NAMENDA [Suspect]
     Indication: DEMENTIA ALZHEIMER'S TYPE
     Dosage: 5 MG QD PO
     Route: 048
     Dates: start: 20040628, end: 20040702
  6. PREVACID [Concomitant]
  7. GLUCOPHAGE [Concomitant]
  8. GLYBURIDE [Concomitant]
  9. RISPERDAL [Concomitant]
  10. ALTACE [Concomitant]
  11. ASPIRIN [Concomitant]
  12. ATENOLOL [Concomitant]
  13. PRAVACHOL [Concomitant]
  14. AMBIEN [Concomitant]
  15. ZOCOR [Concomitant]
  16. MULTIVITAMIN [Concomitant]
  17. ARICEPT [Concomitant]

REACTIONS (2)
  - AGGRESSION [None]
  - AGITATION [None]
